FAERS Safety Report 6713536-5 (Version None)
Quarter: 2010Q2

REPORT INFORMATION
  Report Type: 
  Country: None (occurrence: None)
  Receive Date: 20100506
  Receipt Date: 20100426
  Transmission Date: 20101027
  Serious: Yes (Other)
  Sender: FDA-Public Use
  Company Number: US-JNJCH-2010010272

PATIENT
  Age: 27 Year
  Sex: Male
  Weight: 93 kg

DRUGS (1)
  1. BENGAY ULTRA STRENGTH [Suspect]
     Indication: MUSCLE STRAIN
     Dosage: TEXT:ONCE
     Route: 061
     Dates: start: 20100426, end: 20100426

REACTIONS (4)
  - APPLICATION SITE ERYTHEMA [None]
  - APPLICATION SITE PAIN [None]
  - APPLICATION SITE SCAR [None]
  - CAUSTIC INJURY [None]
